FAERS Safety Report 20939986 (Version 1)
Quarter: 2022Q2

REPORT INFORMATION
  Report Type: Spontaneous
  Country: US (occurrence: US)
  Receive Date: 20220609
  Receipt Date: 20220609
  Transmission Date: 20220721
  Serious: Yes (Other)
  Sender: FDA-Public Use
  Company Number: US-FreseniusKabi-FK202207964

PATIENT
  Age: 55 Year
  Sex: Male

DRUGS (4)
  1. ETOPOSIDE [Suspect]
     Active Substance: ETOPOSIDE
     Indication: Plasmablastic lymphoma
  2. CARBOPLATIN [Suspect]
     Active Substance: CARBOPLATIN
     Indication: Plasmablastic lymphoma
  3. IFOSFAMIDE [Suspect]
     Active Substance: IFOSFAMIDE
     Indication: Plasmablastic lymphoma
  4. DARATUMUMAB [Suspect]
     Active Substance: DARATUMUMAB
     Indication: Plasmablastic lymphoma
     Route: 042

REACTIONS (2)
  - Febrile neutropenia [Recovered/Resolved]
  - Septic shock [Recovered/Resolved]
